FAERS Safety Report 25071831 (Version 2)
Quarter: 2025Q2

REPORT INFORMATION
  Report Type: Spontaneous
  Country: US (occurrence: US)
  Receive Date: 20250313
  Receipt Date: 20250511
  Transmission Date: 20250717
  Serious: No
  Sender: SANOFI AVENTIS
  Company Number: US-SANOFI-02440384

PATIENT
  Age: 36 Year
  Sex: Female

DRUGS (10)
  1. DUPIXENT [Suspect]
     Active Substance: DUPILUMAB
     Indication: Neurodermatitis
     Dosage: 300 MG, QOW
     Dates: start: 2024
  2. VITAMINS [Concomitant]
     Active Substance: VITAMINS
  3. HYDROXYZINE [Concomitant]
     Active Substance: HYDROXYZINE HYDROCHLORIDE
  4. MONTELUKAST [Concomitant]
     Active Substance: MONTELUKAST
  5. VYVANSE [Concomitant]
     Active Substance: LISDEXAMFETAMINE DIMESYLATE
  6. VYVANSE [Concomitant]
     Active Substance: LISDEXAMFETAMINE DIMESYLATE
  7. XANAX [Concomitant]
     Active Substance: ALPRAZOLAM
  8. XANAX [Concomitant]
     Active Substance: ALPRAZOLAM
  9. ESTROGENS [Concomitant]
     Active Substance: ESTROGENS
     Indication: Endometriosis
  10. ESTROGENS [Concomitant]
     Active Substance: ESTROGENS
     Indication: Endometriosis

REACTIONS (2)
  - Injection site haemorrhage [Unknown]
  - Injection site pain [Recovered/Resolved]

NARRATIVE: CASE EVENT DATE: 20250306
